FAERS Safety Report 15215899 (Version 1)
Quarter: 2018Q3

REPORT INFORMATION
  Report Type: Report from Study
  Country: DE (occurrence: DE)
  Receive Date: 20180730
  Receipt Date: 20180730
  Transmission Date: 20181010
  Serious: Yes (Hospitalization)
  Sender: FDA-Public Use
  Company Number: DE-PFIZER INC-2018300478

PATIENT
  Age: 76 Year
  Sex: Female
  Weight: 94 kg

DRUGS (7)
  1. BEVACIZUMAB. [Suspect]
     Active Substance: BEVACIZUMAB
     Indication: BREAST CANCER METASTATIC
     Dosage: 1400 MG, EVERY 3 WEEKS
     Route: 042
     Dates: start: 20140616, end: 20140616
  2. PACLITAXEL. [Suspect]
     Active Substance: PACLITAXEL
     Dosage: 270 MG, EVERY 3 WEEKS, 28?JUL?2014
     Route: 042
     Dates: start: 20140707
  3. MIRTAZAPIN [Concomitant]
     Active Substance: MIRTAZAPINE
     Indication: ANXIETY
     Dosage: 0.5 MG, UNK
     Route: 048
     Dates: start: 20140620
  4. L?THYROXIN [Concomitant]
     Active Substance: LEVOTHYROXINE SODIUM
     Indication: THYROID DISORDER
     Route: 048
  5. NOVAMIN (UNK INGREDIENTS) [Concomitant]
     Indication: MYALGIA
     Route: 042
  6. BONDRONAT [Concomitant]
     Active Substance: IBANDRONATE SODIUM
     Indication: MYALGIA
     Dosage: 1 G, UNK
     Route: 042
     Dates: start: 20140616, end: 20140616
  7. PACLITAXEL. [Suspect]
     Active Substance: PACLITAXEL
     Indication: BREAST CANCER METASTATIC
     Dosage: 348 MG, EVERY 3 WEEKS
     Route: 042
     Dates: start: 20140616

REACTIONS (2)
  - Hypertensive crisis [Recovered/Resolved]
  - Hypertension [Recovered/Resolved]

NARRATIVE: CASE EVENT DATE: 20140616
